FAERS Safety Report 21050033 (Version 2)
Quarter: 2022Q3

REPORT INFORMATION
  Report Type: Spontaneous
  Country: JP (occurrence: JP)
  Receive Date: 20220706
  Receipt Date: 20220718
  Transmission Date: 20221027
  Serious: Yes (Other)
  Sender: FDA-Public Use
  Company Number: JP-MALLINCKRODT-T202203500

PATIENT
  Age: 45 Year
  Sex: Female
  Weight: 48 kg

DRUGS (4)
  1. OFIRMEV [Suspect]
     Active Substance: ACETAMINOPHEN
     Indication: Acute abdomen
     Dosage: 90 MILLILITER, QD
     Route: 042
     Dates: start: 20190827, end: 20190827
  2. OFIRMEV [Suspect]
     Active Substance: ACETAMINOPHEN
     Indication: Pain
  3. MONTELUKAST SODIUM [Concomitant]
     Active Substance: MONTELUKAST SODIUM
     Indication: Product used for unknown indication
     Dosage: 10 MILLIGRAM, QD
     Route: 048
  4. FLUTICASONE FUROATE\VILANTEROL TRIFENATATE [Concomitant]
     Active Substance: FLUTICASONE FUROATE\VILANTEROL TRIFENATATE
     Indication: Product used for unknown indication
     Dosage: RELVAR 100 (VILANTEROL TRIPHENYLACETATE 40 MCG (25 MCG AS VILANTEROL) AND 100MCG FLUTICASONE FURANCA
     Route: 055

REACTIONS (6)
  - Asthma [Recovered/Resolved]
  - Depressed level of consciousness [Recovering/Resolving]
  - Respiratory arrest [Recovering/Resolving]
  - Overdose [Unknown]
  - Off label use [Unknown]
  - Contraindicated product administered [Unknown]

NARRATIVE: CASE EVENT DATE: 20190827
